FAERS Safety Report 6824632-6 (Version None)
Quarter: 2010Q3

REPORT INFORMATION
  Report Type: 
  Country: None (occurrence: None)
  Receive Date: 20100708
  Receipt Date: 20061110
  Transmission Date: 20110219
  Serious: No
  Sender: FDA-Public Use
  Company Number: US-PFIZER INC-2006140443

PATIENT
  Sex: Female
  Weight: 72.57 kg

DRUGS (9)
  1. CHANTIX [Suspect]
     Indication: SMOKING CESSATION THERAPY
     Dates: start: 20061110
  2. EFFEXOR [Concomitant]
  3. CITALOPRAM HYDROBROMIDE [Concomitant]
  4. ALL OTHER THERAPEUTIC PRODUCTS [Concomitant]
  5. SEROQUEL [Concomitant]
  6. DIAZEPAM [Concomitant]
  7. FLECAINIDE ACETATE [Concomitant]
  8. PREDNISONE [Concomitant]
     Dates: end: 20061110
  9. DOXYCYCLINE [Concomitant]
     Dates: end: 20061110

REACTIONS (1)
  - ABDOMINAL PAIN [None]
